FAERS Safety Report 9354645 (Version 2)
Quarter: 2013Q3

REPORT INFORMATION
  Report Type: Report from Study
  Country: US (occurrence: US)
  Receive Date: 20130618
  Receipt Date: 20130828
  Transmission Date: 20140515
  Serious: Yes (Other)
  Sender: FDA-Public Use
  Company Number: US-ELI_LILLY_AND_COMPANY-US201303007407

PATIENT
  Age: 67 Year
  Sex: Female
  Weight: 82.99 kg

DRUGS (7)
  1. TERIPARATIDE [Suspect]
     Indication: OSTEOPOROSIS
     Dosage: 20 UG, QD
     Dates: start: 20130313
  2. TERIPARATIDE [Suspect]
     Dosage: 20 UG, QD
     Route: 058
     Dates: start: 20130312
  3. LORCET [Suspect]
     Dosage: 7.5, UNK, PRN
  4. EFFEXOR [Suspect]
     Dosage: UNK UNK, QD
  5. KLONOPIN [Concomitant]
     Dosage: 1 MG, QD
  6. LYRICA [Concomitant]
     Dosage: 50 MG, UNK
  7. PROZAC [Concomitant]

REACTIONS (11)
  - Concussion [Recovered/Resolved]
  - Fall [Unknown]
  - Syncope [Unknown]
  - Confusional state [Unknown]
  - Memory impairment [Recovered/Resolved]
  - Laceration [Unknown]
  - Influenza like illness [Recovered/Resolved]
  - Post-traumatic headache [Recovered/Resolved]
  - Pollakiuria [Recovered/Resolved]
  - Joint swelling [Unknown]
  - Dizziness [Unknown]
